FAERS Safety Report 11010867 (Version 3)
Quarter: 2015Q2

REPORT INFORMATION
  Report Type: Spontaneous
  Country: JP (occurrence: JP)
  Receive Date: 20150410
  Receipt Date: 20150505
  Transmission Date: 20150821
  Serious: Yes (Hospitalization)
  Sender: FDA-Public Use
  Company Number: JP-PFIZER INC-2015124492

PATIENT
  Age: 85 Year
  Sex: Female
  Weight: 46 kg

DRUGS (7)
  1. THEOLONG [Concomitant]
     Active Substance: THEOPHYLLINE ANHYDROUS
     Dosage: UNK
     Route: 048
  2. OVULANZE [Concomitant]
     Active Substance: OMEPRAZOLE
     Dosage: 10 MG, DAILY
     Route: 048
  3. LUPRAC [Concomitant]
     Active Substance: TORSEMIDE
     Dosage: 8 MG, DAILY
     Route: 048
  4. TSUMURA GOREISAN EXTRACT GRANULES FOR ETHICAL USE [Concomitant]
     Dosage: 22.5 G, DAILY
     Route: 048
  5. ZOSYN [Suspect]
     Active Substance: PIPERACILLIN SODIUM\TAZOBACTAM SODIUM
     Indication: PNEUMONIA
     Dosage: 4.5 G, 2X/DAY
     Route: 042
     Dates: start: 20150327, end: 20150330
  6. LOSARTAN K [Concomitant]
     Dosage: 200 MG, DAILY
     Route: 048
  7. DEPAKENE [Concomitant]
     Active Substance: VALPROIC ACID
     Dosage: 400 MG, DAILY
     Route: 048

REACTIONS (1)
  - Hepatic function abnormal [Recovering/Resolving]

NARRATIVE: CASE EVENT DATE: 20150330
